FAERS Safety Report 9233748 (Version 1)
Quarter: 2013Q2

REPORT INFORMATION
  Report Type: Spontaneous
  Country: US (occurrence: US)
  Receive Date: 20130416
  Receipt Date: 20130416
  Transmission Date: 20140414
  Serious: No
  Sender: FDA-Public Use
  Company Number: US-BANPHARM-20131037

PATIENT
  Age: 77 Year
  Sex: Female
  Weight: 52.16 kg

DRUGS (5)
  1. ALEVE LIQUID GELS 220MG [Suspect]
     Indication: PAIN
     Dosage: 1 DF, QD,
     Route: 048
     Dates: start: 20120613, end: 20120614
  2. XANAX [Concomitant]
  3. ZOCOR [Concomitant]
  4. CO Q10 [Concomitant]
  5. CORTISONE [Concomitant]

REACTIONS (1)
  - Drug effect incomplete [Unknown]
